FAERS Safety Report 23481853 (Version 1)
Quarter: 2024Q1

REPORT INFORMATION
  Report Type: Spontaneous
  Country: GB (occurrence: GB)
  Receive Date: 20240205
  Receipt Date: 20240205
  Transmission Date: 20240410
  Serious: Yes (Disabling)
  Sender: FDA-Public Use
  Company Number: None

PATIENT
  Age: 53 Year
  Sex: Female
  Weight: 62 kg

DRUGS (1)
  1. GABAPENTIN [Suspect]
     Active Substance: GABAPENTIN
     Indication: Product used for unknown indication
     Dosage: UNK
     Route: 065

REACTIONS (7)
  - Pain in extremity [Not Recovered/Not Resolved]
  - Irritability [Not Recovered/Not Resolved]
  - Amnesia [Not Recovered/Not Resolved]
  - Tinnitus [Not Recovered/Not Resolved]
  - Anxiety [Not Recovered/Not Resolved]
  - Thinking abnormal [Not Recovered/Not Resolved]
  - Tremor [Not Recovered/Not Resolved]
